FAERS Safety Report 5736140-4 (Version None)
Quarter: 2008Q2

REPORT INFORMATION
  Report Type: 
  Country: None (occurrence: None)
  Receive Date: 20080509
  Receipt Date: 20080428
  Transmission Date: 20081010
  Serious: Yes (Hospitalization)
  Sender: FDA-Public Use
  Company Number: 2008AL002614

PATIENT
  Age: 65 Year
  Sex: Male

DRUGS (9)
  1. DIGOXIN [Suspect]
     Indication: CARDIAC FAILURE CONGESTIVE
     Dosage: 0.25 MG; QD; PO
     Route: 048
     Dates: end: 20080428
  2. ACTOS PLUS [Concomitant]
  3. COREG [Concomitant]
  4. VYTORIN [Concomitant]
  5. ALTACE [Concomitant]
  6. LANTUS [Concomitant]
  7. HUMALOG [Concomitant]
  8. ALLEGRA [Concomitant]
  9. EFFEXOR [Concomitant]

REACTIONS (4)
  - DIZZINESS [None]
  - HYPOAESTHESIA [None]
  - PALLOR [None]
  - TRANSIENT ISCHAEMIC ATTACK [None]
